FAERS Safety Report 4576353-0 (Version None)
Quarter: 2005Q1

REPORT INFORMATION
  Report Type: 
  Country: None (occurrence: None)
  Receive Date: 20050207
  Receipt Date: 20050201
  Transmission Date: 20050727
  Serious: Yes (Death)
  Sender: FDA-Public Use
  Company Number: HQWYE018402FEB05

PATIENT
  Age: 33 Year
  Sex: Male

DRUGS (10)
  1. RAPAMUNE [Suspect]
     Indication: PROPHYLAXIS AGAINST TRANSPLANT REJECTION
     Dosage: 3 MG 1X PER 1 DAY ORAL
     Route: 048
     Dates: start: 20041228
  2. PROGRAF [Suspect]
     Indication: PROPHYLAXIS AGAINST TRANSPLANT REJECTION
     Dosage: 6 MG 1X PER 1 DAY ORAL
     Route: 048
     Dates: start: 20041228
  3. AMLODIPINE [Concomitant]
  4. METHYLDOPA [Concomitant]
  5. CLONIDINE HCL [Concomitant]
  6. RANITIDINE [Concomitant]
  7. CARVEDILOL [Concomitant]
  8. ACYCLOVIR [Concomitant]
  9. SULFAMETHOXAZOLE + TRIMETHOPRIM [Concomitant]
  10. CORTICOSTEROID NOS                     (CORTICOSTEROID NOS) [Concomitant]

REACTIONS (8)
  - ACUTE RESPIRATORY DISTRESS SYNDROME [None]
  - ATELECTASIS [None]
  - BLOOD POTASSIUM INCREASED [None]
  - BLOOD UREA INCREASED [None]
  - HAEMATOCRIT DECREASED [None]
  - RED BLOOD CELL COUNT DECREASED [None]
  - SHOCK [None]
  - WHITE BLOOD CELL COUNT DECREASED [None]
